FAERS Safety Report 7589382-X (Version None)
Quarter: 2011Q3

REPORT INFORMATION
  Report Type: 
  Country: None (occurrence: None)
  Receive Date: 20110705
  Receipt Date: 20110622
  Transmission Date: 20111222
  Serious: Yes (Other)
  Sender: FDA-Public Use
  Company Number: GB-ELI_LILLY_AND_COMPANY-GB201106006730

PATIENT
  Sex: Male

DRUGS (6)
  1. NIFEDIPINE [Concomitant]
     Indication: RAYNAUD'S PHENOMENON
     Dosage: 5 MG, PRN
     Route: 048
     Dates: start: 20070101
  2. ZYPREXA [Suspect]
     Indication: PSYCHOTIC DISORDER
     Dosage: 5 MG, UNK
     Dates: start: 20110301, end: 20110301
  3. RISPERIDONE [Concomitant]
     Indication: PSYCHOTIC DISORDER
     Dosage: 4 MG, UNK
     Route: 048
     Dates: start: 20101001, end: 20110101
  4. CHLORPROMAZINE [Concomitant]
     Indication: PSYCHOTIC DISORDER
     Dosage: 3 DF, UNK
     Dates: start: 20100616
  5. DICLOFENAC SODIUM [Concomitant]
     Indication: ARTHRALGIA
     Dosage: 3 DF, QD
     Dates: start: 20100101
  6. OMEPRAZOLE [Concomitant]
     Dosage: 20 MG, UNK
     Dates: start: 20100607

REACTIONS (2)
  - DIPLOPIA [None]
  - PANIC ATTACK [None]
